FAERS Safety Report 9540964 (Version 1)
Quarter: 2013Q3

REPORT INFORMATION
  Report Type: Spontaneous
  Country: GB (occurrence: GB)
  Receive Date: 20130922
  Receipt Date: 20130922
  Transmission Date: 20140515
  Serious: Yes (Disabling)
  Sender: FDA-Public Use
  Company Number: GB-009507513-1309GBR006990

PATIENT
  Age: 51 Year
  Sex: Male
  Weight: 134.5 kg

DRUGS (14)
  1. MIRTAZAPINE [Suspect]
  2. ATORVASTATIN [Concomitant]
     Dosage: UNK
     Route: 048
     Dates: start: 20130507, end: 20130826
  3. BUPRENORPHINE [Concomitant]
     Dosage: UNK
     Dates: start: 20130507, end: 20130826
  4. CITALOPRAM [Concomitant]
     Dosage: UNK
     Dates: start: 20130507, end: 20130801
  5. DOXAZOSIN MESYLATE [Concomitant]
     Dosage: UNK
     Dates: start: 20130507, end: 20130826
  6. FELODIPINE [Concomitant]
     Dosage: UNK
     Dates: start: 20130507, end: 20130826
  7. FERROUS SULFATE [Concomitant]
     Dosage: UNK
     Dates: start: 20130507, end: 20130826
  8. METFORMIN [Concomitant]
     Dosage: UNK
     Dates: start: 20130507, end: 20130826
  9. NOVORAPID [Concomitant]
     Dosage: UNK
     Dates: start: 20130507, end: 20130826
  10. ORLISTAT [Concomitant]
     Dosage: UNK
     Dates: start: 20130507, end: 20130826
  11. PROPRANOLOL HYDROCHLORIDE [Concomitant]
     Dosage: UNK
     Dates: start: 20130507, end: 20130826
  12. RAMIPRIL [Concomitant]
     Dosage: UNK
     Dates: start: 20130507, end: 20130826
  13. TRAMADOL HYDROCHLORIDE [Concomitant]
     Dosage: UNK
     Dates: start: 20130528, end: 20130808
  14. INSULATARD HUMAN [Concomitant]
     Dosage: UNK
     Dates: start: 20130507, end: 20130826

REACTIONS (2)
  - Blood glucose increased [Unknown]
  - Hallucinations, mixed [Recovered/Resolved]
